FAERS Safety Report 8209153-0 (Version None)
Quarter: 2012Q1

REPORT INFORMATION
  Report Type: 
  Country: None (occurrence: None)
  Receive Date: 20120314
  Receipt Date: 20120308
  Transmission Date: 20120608
  Serious: Yes (Other)
  Sender: FDA-Public Use
  Company Number: US-BAYER-2012-023373

PATIENT

DRUGS (2)
  1. KIDNEY MEDICINE [Concomitant]
  2. ALEVE (CAPLET) [Suspect]
     Dosage: DAILY DOSE 4 DF
     Route: 048

REACTIONS (2)
  - ANXIETY [None]
  - MALAISE [None]
